FAERS Safety Report 7437061-1 (Version None)
Quarter: 2011Q2

REPORT INFORMATION
  Report Type: 
  Country: None (occurrence: None)
  Receive Date: 20110426
  Receipt Date: 20110413
  Transmission Date: 20111010
  Serious: Yes (Other)
  Sender: FDA-Public Use
  Company Number: PHHY2010MX45172

PATIENT
  Age: 85 Year
  Sex: Female

DRUGS (3)
  1. ANTIESTAC [Concomitant]
  2. ACLASTA [Suspect]
     Indication: OSTEOPOROSIS
     Dosage: 5 MG, UNK
     Route: 042
     Dates: start: 20090401
  3. CALTRATE +D [Concomitant]

REACTIONS (4)
  - FALL [None]
  - RIB FRACTURE [None]
  - PAIN IN EXTREMITY [None]
  - VENOUS INSUFFICIENCY [None]
